FAERS Safety Report 16700631 (Version 4)
Quarter: 2023Q4

REPORT INFORMATION
  Report Type: Spontaneous
  Country: DE (occurrence: DE)
  Receive Date: 20190814
  Receipt Date: 20231006
  Transmission Date: 20240110
  Serious: Yes (Hospitalization)
  Sender: FDA-Public Use
  Company Number: None

PATIENT
  Age: 66 Year
  Sex: Female
  Weight: 68 kg

DRUGS (10)
  1. CEFUROXIME [Suspect]
     Active Substance: CEFUROXIME
     Indication: Cystitis noninfective
     Dosage: UNK
     Route: 065
     Dates: start: 201904
  2. LEVOFLOXACIN [Suspect]
     Active Substance: LEVOFLOXACIN
     Indication: Bronchitis
     Dosage: 500 MILLIGRAM, ONCE A DAY (INSGESAMT 7 TABLETTEN)
     Route: 048
     Dates: start: 201811
  3. CIPRO [Suspect]
     Active Substance: CIPROFLOXACIN HYDROCHLORIDE
     Indication: Bronchitis
     Dosage: 2 DOSAGE FORM, (2 PACKUNGEN)
     Route: 065
  4. CIPRO [Suspect]
     Active Substance: CIPROFLOXACIN HYDROCHLORIDE
     Dosage: 2 PACKUNGEN
     Route: 065
     Dates: start: 201902, end: 201903
  5. CIPROFLOXACIN [Suspect]
     Active Substance: CIPROFLOXACIN
     Indication: Bronchitis
     Dosage: 1000 MILLIGRAM, ONCE A DAY (INSGESAMT 14 TABLETTEN)
     Route: 048
     Dates: start: 201311, end: 201311
  6. CIPROFLOXACIN [Suspect]
     Active Substance: CIPROFLOXACIN
     Dosage: 1000 MILLIGRAM, ONCE A DAY
     Route: 048
     Dates: start: 201902, end: 201902
  7. COTRIM [Suspect]
     Active Substance: SULFAMETHOXAZOLE\TRIMETHOPRIM
     Indication: Cystitis noninfective
     Dosage: UNK
     Route: 065
     Dates: start: 201812
  8. OFLOXACIN [Suspect]
     Active Substance: OFLOXACIN
     Indication: Cystitis noninfective
     Dosage: 2 DOSAGE FORM, (2 PACKUNGEN)
     Route: 065
  9. OFLOXACIN [Suspect]
     Active Substance: OFLOXACIN
     Dosage: 2 PACKUNGEN
     Route: 065
     Dates: start: 201810
  10. OFLOXACIN [Suspect]
     Active Substance: OFLOXACIN
     Dosage: UNK
     Route: 065
     Dates: start: 201812

REACTIONS (13)
  - Fibromyalgia [Unknown]
  - Muscular weakness [Unknown]
  - Illusion [Unknown]
  - Pain in extremity [Unknown]
  - Anxiety [Unknown]
  - Back pain [Unknown]
  - Arthralgia [Unknown]
  - Tendon disorder [Unknown]
  - General physical health deterioration [Unknown]
  - Presyncope [Unknown]
  - Tendon rupture [Unknown]
  - Formication [Unknown]
  - Musculoskeletal pain [Unknown]

NARRATIVE: CASE EVENT DATE: 20190101
